FAERS Safety Report 15932052 (Version 1)
Quarter: 2019Q1

REPORT INFORMATION
  Report Type: Spontaneous
  Country: US (occurrence: US)
  Receive Date: 20190207
  Receipt Date: 20190207
  Transmission Date: 20190417
  Serious: Yes (Life-Threatening, Disabling)
  Sender: FDA-Public Use
  Company Number: None

PATIENT
  Age: 35 Year
  Sex: Female
  Weight: 109.35 kg

DRUGS (4)
  1. ARMOUR THYROID [Concomitant]
     Active Substance: THYROID, PORCINE
  2. SPIRONOLACTONE. [Concomitant]
     Active Substance: SPIRONOLACTONE
  3. NATURE-THROID [Suspect]
     Active Substance: THYROID, PORCINE
     Indication: POST PROCEDURAL HYPOTHYROIDISM
     Dosage: ?          QUANTITY:4.5 TABLET(S);?
     Route: 048
     Dates: start: 20150121, end: 20190201
  4. VICTOZA [Concomitant]
     Active Substance: LIRAGLUTIDE

REACTIONS (6)
  - Product complaint [None]
  - Blood thyroid stimulating hormone increased [None]
  - Thyroxine decreased [None]
  - Tri-iodothyronine decreased [None]
  - Drug ineffective [None]
  - Product distribution issue [None]

NARRATIVE: CASE EVENT DATE: 20190124
